FAERS Safety Report 5577958-0 (Version None)
Quarter: 2007Q4

REPORT INFORMATION
  Report Type: 
  Country: None (occurrence: None)
  Receive Date: 20071231
  Receipt Date: 20071222
  Transmission Date: 20080405
  Serious: Yes (Other)
  Sender: FDA-Public Use
  Company Number: JP-BRISTOL-MYERS SQUIBB COMPANY-14027213

PATIENT
  Sex: Female

DRUGS (4)
  1. ENDOXAN [Suspect]
     Indication: LYMPHOMA
     Dosage: 1 DOSAGE FORM = 13.4G/M2
  2. ETOPOSIDE [Suspect]
     Indication: LYMPHOMA
  3. DOXORUBICIN HCL [Suspect]
     Indication: LYMPHOMA
  4. EPIRUBICIN [Suspect]
     Indication: LYMPHOMA

REACTIONS (1)
  - ACUTE MYELOID LEUKAEMIA [None]
